FAERS Safety Report 20456151 (Version 1)
Quarter: 2022Q1

REPORT INFORMATION
  Report Type: Spontaneous
  Country: US (occurrence: None)
  Receive Date: 20220210
  Receipt Date: 20220210
  Transmission Date: 20220424
  Serious: No
  Sender: FDA-Public Use
  Company Number: None

PATIENT
  Sex: Female

DRUGS (1)
  1. STELARA [Suspect]
     Active Substance: USTEKINUMAB
     Indication: Psoriatic arthropathy
     Dosage: OTHER QUANTITY : 45MG/.5ML;?OTHER FREQUENCY : EVERY 12 WEEKS;?OTHER ROUTE : UNDER THE SKIN;?
     Route: 050
     Dates: start: 20210908, end: 202202

REACTIONS (4)
  - Psoriasis [None]
  - Arthritis [None]
  - Peripheral swelling [None]
  - Pain [None]
